FAERS Safety Report 9422065 (Version 1)
Quarter: 2013Q3

REPORT INFORMATION
  Report Type: Report from Study
  Country: FR (occurrence: FR)
  Receive Date: 20130726
  Receipt Date: 20130726
  Transmission Date: 20140515
  Serious: Yes (Other)
  Sender: FDA-Public Use
  Company Number: FR-ROCHE-GNE242214

PATIENT
  Age: 69 Year
  Sex: Female

DRUGS (3)
  1. RITUXIMAB [Suspect]
     Indication: VASCULITIS
     Route: 042
  2. MYCOPHENOLATE MOFETIL [Suspect]
     Indication: VASCULITIS
     Route: 065
  3. PREDNISOLONE [Suspect]
     Indication: VASCULITIS
     Route: 065

REACTIONS (2)
  - Serum sickness [Recovered/Resolved]
  - Infection [Unknown]
